FAERS Safety Report 23213079 (Version 4)
Quarter: 2023Q4

REPORT INFORMATION
  Report Type: Spontaneous
  Country: FR (occurrence: FR)
  Receive Date: 20231121
  Receipt Date: 20231208
  Transmission Date: 20240110
  Serious: Yes (Other)
  Sender: FDA-Public Use
  Company Number: FR-ASPEN-GLO2023FR006978

PATIENT
  Age: 35 Year
  Sex: Male

DRUGS (6)
  1. AZATHIOPRINE [Suspect]
     Active Substance: AZATHIOPRINE
     Indication: Crohn^s disease
     Dosage: UNK (AZATHIOPRINE THEN METHOTREXATE FOR 6 YEARS)
     Route: 065
  2. AZATHIOPRINE [Suspect]
     Active Substance: AZATHIOPRINE
     Dosage: UNK (COMBINING ADALIMUMAB AND AZATHIOPRINE FOR 10 YEARS)
     Route: 065
  3. METHOTREXATE [Suspect]
     Active Substance: METHOTREXATE
     Indication: Crohn^s disease
     Dosage: UNK (AZATHIOPRINE THEN METHOTREXATE FOR 6 YEARS)
     Route: 065
  4. ADALIMUMAB [Suspect]
     Active Substance: ADALIMUMAB\ISOPROPYL ALCOHOL
     Indication: Crohn^s disease
     Dosage: UNK (COMBINING ADALIMUMAB AND AZATHIOPRINE FOR 10 YEARS)
     Route: 058
  5. INFLIXIMAB [Suspect]
     Active Substance: INFLIXIMAB
     Indication: Crohn^s disease
     Dosage: UNK
     Route: 065
  6. AZATHIOPRINE [Concomitant]
     Active Substance: AZATHIOPRINE
     Indication: Crohn^s disease
     Dosage: UNK
     Route: 065

REACTIONS (10)
  - Epstein-Barr virus associated lymphoma [Unknown]
  - B-cell lymphoma [Unknown]
  - Diffuse large B-cell lymphoma [Unknown]
  - General physical health deterioration [Unknown]
  - Weight decreased [Unknown]
  - Asthenia [Unknown]
  - Iron deficiency anaemia [Unknown]
  - Decreased appetite [Unknown]
  - Abdominal pain [Unknown]
  - Epstein-Barr virus infection [Unknown]
